FAERS Safety Report 6245697-9 (Version None)
Quarter: 2009Q2

REPORT INFORMATION
  Report Type: 
  Country: None (occurrence: None)
  Receive Date: 20090625
  Receipt Date: 20090611
  Transmission Date: 20091009
  Serious: Yes (Other)
  Sender: FDA-Public Use
  Company Number: IN-GENENTECH-285471

PATIENT
  Age: 28 Year
  Sex: Male

DRUGS (4)
  1. MABTHERA [Suspect]
     Indication: NEPHROTIC SYNDROME
     Dosage: 700 MG, QD
     Route: 042
     Dates: start: 20090522
  2. DEFLAZACORT [Concomitant]
     Indication: DRUG USE FOR UNKNOWN INDICATION
     Dosage: UNK
     Dates: start: 20090401
  3. ATORVASTATIN CALCIUM [Concomitant]
     Indication: DRUG USE FOR UNKNOWN INDICATION
     Dosage: UNK
     Dates: start: 20080302
  4. CARVEDILOL [Concomitant]
     Indication: DRUG USE FOR UNKNOWN INDICATION
     Dosage: UNK

REACTIONS (1)
  - CONVULSION [None]
